FAERS Safety Report 14780241 (Version 1)
Quarter: 2018Q2

REPORT INFORMATION
  Report Type: Spontaneous
  Country: HR (occurrence: HR)
  Receive Date: 20180419
  Receipt Date: 20180419
  Transmission Date: 20180711
  Serious: Yes (Hospitalization)
  Sender: FDA-Public Use
  Company Number: HR-TEVA-2018-HR-880777

PATIENT
  Age: 65 Year
  Sex: Female
  Weight: 78 kg

DRUGS (6)
  1. DALNEVA [Concomitant]
     Indication: ESSENTIAL HYPERTENSION
     Route: 048
  2. BELOSALIC [Concomitant]
     Indication: DERMATITIS CONTACT
  3. NORMABEL [Concomitant]
     Active Substance: DIAZEPAM
     Indication: INTERVERTEBRAL DISC DISORDER
     Route: 048
  4. DOXYCYCLINE. [Suspect]
     Active Substance: DOXYCYCLINE
     Route: 048
     Dates: start: 2018, end: 2018
  5. DOXYCYCLINE. [Suspect]
     Active Substance: DOXYCYCLINE
     Indication: RASH
     Route: 048
     Dates: start: 2018, end: 2018
  6. DICLO DUO KAPSULE 75 MG [Concomitant]
     Indication: INTERVERTEBRAL DISC DISORDER
     Route: 048

REACTIONS (2)
  - Faeces discoloured [Recovering/Resolving]
  - Diarrhoea haemorrhagic [Recovering/Resolving]

NARRATIVE: CASE EVENT DATE: 20180201
